FAERS Safety Report 4546276-1 (Version None)
Quarter: 2005Q1

REPORT INFORMATION
  Report Type: 
  Country: None (occurrence: None)
  Receive Date: 20050106
  Receipt Date: 20041230
  Transmission Date: 20050727
  Serious: Yes (Other)
  Sender: FDA-Public Use
  Company Number: US-MERCK-0412USA03322

PATIENT
  Age: 62 Year
  Sex: Male

DRUGS (4)
  1. ZETIA [Suspect]
     Indication: BLOOD CHOLESTEROL INCREASED
     Route: 048
  2. LEXAPRO [Suspect]
     Indication: DEPRESSION
     Route: 048
     Dates: start: 20040801
  3. LEXAPRO [Suspect]
     Route: 048
     Dates: start: 20040401, end: 20040801
  4. TIKOSYN [Suspect]
     Indication: ATRIAL FIBRILLATION
     Route: 065
     Dates: end: 20041126

REACTIONS (4)
  - ATRIAL FIBRILLATION [None]
  - DEPRESSION [None]
  - ELECTROCARDIOGRAM QT PROLONGED [None]
  - SUPRAVENTRICULAR EXTRASYSTOLES [None]
